FAERS Safety Report 6875512-1 (Version None)
Quarter: 2010Q3

REPORT INFORMATION
  Report Type: 
  Country: None (occurrence: None)
  Receive Date: 20100727
  Receipt Date: 20100726
  Transmission Date: 20110219
  Serious: Yes (Hospitalization)
  Sender: FDA-Public Use
  Company Number: US-JNJFOC-20100606134

PATIENT
  Sex: Female
  Weight: 49.9 kg

DRUGS (2)
  1. DURAGESIC-100 [Suspect]
     Indication: FIBROMYALGIA
     Route: 062
  2. ESTROGEN [Concomitant]
     Indication: HORMONE REPLACEMENT THERAPY
     Route: 048

REACTIONS (8)
  - ANGINA PECTORIS [None]
  - BLOOD CHOLESTEROL INCREASED [None]
  - CONSTIPATION [None]
  - FLUID RETENTION [None]
  - HAND FRACTURE [None]
  - INSOMNIA [None]
  - LOWER LIMB FRACTURE [None]
  - OSTEONECROSIS [None]
